FAERS Safety Report 12089724 (Version 1)
Quarter: 2016Q1

REPORT INFORMATION
  Report Type: Spontaneous
  Country: US (occurrence: US)
  Receive Date: 20160218
  Receipt Date: 20160218
  Transmission Date: 20160526
  Serious: No
  Sender: FDA-Public Use
  Company Number: US-TEVA-630822USA

PATIENT
  Sex: Female

DRUGS (1)
  1. CENESTIN [Suspect]
     Active Substance: ESTROGENS, CONJUGATED SYNTHETIC A
     Indication: HYSTERECTOMY
     Dates: start: 2014

REACTIONS (2)
  - Product substitution issue [Unknown]
  - Drug effect incomplete [Unknown]
